FAERS Safety Report 14869993 (Version 1)
Quarter: 2018Q2

REPORT INFORMATION
  Report Type: Spontaneous
  Country: JP (occurrence: JP)
  Receive Date: 20180509
  Receipt Date: 20180509
  Transmission Date: 20180711
  Serious: Yes (Other)
  Sender: FDA-Public Use
  Company Number: JP-SA-2018SA128508

PATIENT
  Age: 55 Year
  Sex: Female
  Weight: 32.6 kg

DRUGS (9)
  1. ALINAMIN F [Concomitant]
     Active Substance: FURSULTIAMINE HYDROCHLORIDE
     Route: 048
     Dates: start: 20180315, end: 20180404
  2. FOLIAMIN [Concomitant]
     Active Substance: FOLIC ACID
     Route: 048
     Dates: start: 20180308, end: 20180404
  3. NICOTINAMIDE [Concomitant]
     Active Substance: NIACINAMIDE
     Dosage: POWDER
     Route: 048
     Dates: start: 20180410
  4. CEFAZOLIN [Concomitant]
     Active Substance: CEFAZOLIN
     Dosage: INJECTION
     Dates: start: 20180313
  5. RISPERDAL [Concomitant]
     Active Substance: RISPERIDONE
     Route: 048
     Dates: start: 20180315
  6. MINOCYCLINE [Concomitant]
     Active Substance: MINOCYCLINE\MINOCYCLINE HYDROCHLORIDE
     Dosage: INJECTION
     Dates: start: 20180312
  7. CLEXANE [Suspect]
     Active Substance: ENOXAPARIN SODIUM
     Indication: THROMBOSIS PROPHYLAXIS
     Route: 058
     Dates: start: 20180314, end: 20180324
  8. CALONAL [Concomitant]
     Active Substance: ACETAMINOPHEN
     Route: 048
     Dates: start: 20180308
  9. VITAMEDIN [Concomitant]
     Active Substance: CYANOCOBALAMIN\PYRIDOXINE HYDROCHLORIDE\THIAMINE
     Route: 048
     Dates: start: 20180315, end: 20180404

REACTIONS (2)
  - Hypokalaemia [Recovered/Resolved]
  - Thrombocytosis [Recovering/Resolving]

NARRATIVE: CASE EVENT DATE: 20180322
